FAERS Safety Report 12471344 (Version 1)
Quarter: 2016Q2

REPORT INFORMATION
  Report Type: Spontaneous
  Country: US (occurrence: US)
  Receive Date: 20160616
  Receipt Date: 20160616
  Transmission Date: 20160815
  Serious: No
  Sender: FDA-Public Use
  Company Number: US-PFIZER INC-2016289440

PATIENT
  Sex: Female

DRUGS (7)
  1. IODINE. [Suspect]
     Active Substance: IODINE
     Dosage: UNK
  2. KEFLEX [Suspect]
     Active Substance: CEPHALEXIN
     Dosage: UNK
  3. QUESTRAN [Suspect]
     Active Substance: CHOLESTYRAMINE
     Dosage: UNK
  4. LOPID [Suspect]
     Active Substance: GEMFIBROZIL
     Dosage: UNK
  5. GEMFIBROZIL. [Suspect]
     Active Substance: GEMFIBROZIL
     Dosage: UNK
  6. CRESTOR [Suspect]
     Active Substance: ROSUVASTATIN CALCIUM
     Dosage: UNK
  7. CEPHALEXIN. [Suspect]
     Active Substance: CEPHALEXIN
     Dosage: UNK

REACTIONS (1)
  - Drug hypersensitivity [Unknown]
